FAERS Safety Report 6716981-7 (Version None)
Quarter: 2010Q2

REPORT INFORMATION
  Report Type: 
  Country: None (occurrence: None)
  Receive Date: 20100506
  Receipt Date: 20100506
  Transmission Date: 20101027
  Serious: Yes (Hospitalization, Disabling)
  Sender: FDA-Public Use
  Company Number: None

PATIENT
  Age: 66 Year
  Sex: Female
  Weight: 67.1324 kg

DRUGS (3)
  1. FOSAMAX [Suspect]
     Indication: OSTEOPENIA
     Dosage: 1 X A WEEK ORAL
     Route: 048
  2. ACTONEL [Suspect]
     Indication: OSTEOPENIA
     Dosage: 1 X A WEEK ORAL
     Route: 048
  3. BONIVA [Suspect]
     Dosage: 1 X A WEEK ORAL
     Route: 048

REACTIONS (1)
  - FEMUR FRACTURE [None]
